FAERS Safety Report 6911900-2 (Version None)
Quarter: 2010Q3

REPORT INFORMATION
  Report Type: 
  Country: None (occurrence: None)
  Receive Date: 20100806
  Receipt Date: 20071228
  Transmission Date: 20110219
  Serious: No
  Sender: FDA-Public Use
  Company Number: US-PFIZER INC-2007082190

PATIENT
  Sex: Female
  Weight: 68.181 kg

DRUGS (2)
  1. DETROL [Suspect]
     Indication: POLLAKIURIA
     Dates: start: 20070801
  2. DETROL LA [Suspect]
     Indication: POLLAKIURIA
     Dates: start: 20070901

REACTIONS (3)
  - DRUG INEFFECTIVE [None]
  - POLLAKIURIA [None]
  - PRURITUS [None]
